FAERS Safety Report 17822399 (Version 3)
Quarter: 2020Q3

REPORT INFORMATION
  Report Type: Spontaneous
  Country: US (occurrence: US)
  Receive Date: 20200526
  Receipt Date: 20200723
  Transmission Date: 20201102
  Serious: Yes (Hospitalization, Other)
  Sender: FDA-Public Use
  Company Number: US-LUPIN PHARMACEUTICALS INC.-2020-02264

PATIENT
  Sex: Female

DRUGS (3)
  1. VANCOMYCIN HYDROCHLORIDE CAPSULES [Suspect]
     Active Substance: VANCOMYCIN HYDROCHLORIDE
     Dosage: 500 MILLIGRAM, QID (2 CAPSULES, TWICE DAILY)
     Route: 048
     Dates: start: 20200402, end: 202005
  2. VANCOMYCIN HYDROCHLORIDE. [Suspect]
     Active Substance: VANCOMYCIN HYDROCHLORIDE
     Indication: CLOSTRIDIAL SEPSIS
     Dosage: 500 MILLIGRAM, QID (LIQUID)
     Route: 048
     Dates: start: 20200330, end: 20200402
  3. VANCOMYCIN HYDROCHLORIDE CAPSULES [Suspect]
     Active Substance: VANCOMYCIN HYDROCHLORIDE
     Indication: CLOSTRIDIAL SEPSIS
     Dosage: 250 MILLIGRAM, QID
     Route: 048
     Dates: start: 20200301

REACTIONS (4)
  - Drug ineffective [Unknown]
  - Haematochezia [Unknown]
  - White blood cell count increased [Unknown]
  - Clostridial sepsis [Recovered/Resolved]

NARRATIVE: CASE EVENT DATE: 20200328
